FAERS Safety Report 25987621 (Version 2)
Quarter: 2025Q4

REPORT INFORMATION
  Report Type: Spontaneous
  Country: US (occurrence: US)
  Receive Date: 20251103
  Receipt Date: 20251117
  Transmission Date: 20260118
  Serious: Yes (Death, Other)
  Sender: TEVA
  Company Number: US-TEVA-VS-3387192

PATIENT
  Age: 72 Year
  Sex: Female

DRUGS (6)
  1. CARBOPLATIN [Suspect]
     Active Substance: CARBOPLATIN
     Indication: Endometrial adenocarcinoma
     Dosage: ADJUVANT CHEMOTHERAPY; 3 CYCLES
     Route: 065
  2. CARBOPLATIN [Suspect]
     Active Substance: CARBOPLATIN
     Indication: Endometrial adenocarcinoma
     Dosage: NEOADJUVANT CHEMOTHERAPY; 3 CYCLES
     Route: 065
  3. PEMBROLIZUMAB [Suspect]
     Active Substance: PEMBROLIZUMAB
     Indication: Endometrial adenocarcinoma
     Dosage: NEOADJUVANT CHEMOTHERAPY; 3 CYCLES
     Route: 065
  4. PEMBROLIZUMAB [Suspect]
     Active Substance: PEMBROLIZUMAB
     Indication: Endometrial adenocarcinoma
     Dosage: ADJUVANT CHEMOTHERAPY; 3 CYCLES
     Route: 065
  5. PACLITAXEL [Suspect]
     Active Substance: PACLITAXEL
     Indication: Endometrial adenocarcinoma
     Dosage: NEOADJUVANT CHEMOTHERAPY; 3 CYCLES
     Route: 065
  6. PACLITAXEL [Suspect]
     Active Substance: PACLITAXEL
     Indication: Endometrial adenocarcinoma
     Dosage: ADJUVANT CHEMOTHERAPY; 3 CYCLES
     Route: 065

REACTIONS (3)
  - Drug ineffective [Fatal]
  - Enanthema [Recovering/Resolving]
  - Rash [Recovering/Resolving]
